FAERS Safety Report 16784716 (Version 2)
Quarter: 2019Q4

REPORT INFORMATION
  Report Type: Report from Study
  Country: AU (occurrence: AU)
  Receive Date: 20190909
  Receipt Date: 20191210
  Transmission Date: 20200122
  Serious: Yes (Hospitalization)
  Sender: FDA-Public Use
  Company Number: PHHY2019AU196821

PATIENT
  Age: 52 Year
  Sex: Female
  Weight: 75.1 kg

DRUGS (10)
  1. DABRAFENIB [Suspect]
     Active Substance: DABRAFENIB
     Indication: METASTASES TO BONE
     Dosage: 150 MG, BID
     Route: 048
     Dates: start: 20190717, end: 20190724
  2. DABRAFENIB [Suspect]
     Active Substance: DABRAFENIB
     Dosage: 75 MG, BID
     Route: 048
     Dates: start: 20190726
  3. CEFTRIAXONE. [Suspect]
     Active Substance: CEFTRIAXONE
     Indication: PYREXIA
     Dosage: 1 G, QD
     Route: 042
     Dates: start: 20190809, end: 20190814
  4. TRAMETINIB [Suspect]
     Active Substance: TRAMETINIB
     Indication: ERDHEIM-CHESTER DISEASE
     Dosage: 2 MG, QD
     Route: 048
     Dates: start: 20190712, end: 20190724
  5. TRAMETINIB [Suspect]
     Active Substance: TRAMETINIB
     Dosage: 2 MG, QD
     Route: 048
  6. DABRAFENIB [Suspect]
     Active Substance: DABRAFENIB
     Dosage: 75 MG, BID
     Route: 048
     Dates: start: 20190807, end: 20190809
  7. TRAMETINIB [Suspect]
     Active Substance: TRAMETINIB
     Indication: METASTASES TO BONE
     Dosage: 2 MG, QD
     Route: 048
     Dates: start: 20190726
  8. TRAMETINIB [Suspect]
     Active Substance: TRAMETINIB
     Dosage: 2 MG, QD
     Route: 048
     Dates: start: 20190807, end: 20190809
  9. DABRAFENIB [Suspect]
     Active Substance: DABRAFENIB
     Dosage: 150 MG, BID
     Route: 048
  10. DABRAFENIB [Suspect]
     Active Substance: DABRAFENIB
     Indication: ERDHEIM-CHESTER DISEASE
     Dosage: 150 MG, BID
     Route: 048
     Dates: start: 20190712, end: 20190716

REACTIONS (6)
  - Headache [Recovered/Resolved]
  - Pyrexia [Recovered/Resolved]
  - Hepatitis [Recovering/Resolving]
  - Ejection fraction decreased [Unknown]
  - Pyrexia [Not Recovered/Not Resolved]
  - Headache [Recovered/Resolved]

NARRATIVE: CASE EVENT DATE: 20190716
